FAERS Safety Report 14754430 (Version 3)
Quarter: 2018Q2

REPORT INFORMATION
  Report Type: Report from Study
  Country: US (occurrence: US)
  Receive Date: 20180412
  Receipt Date: 20180629
  Transmission Date: 20180711
  Serious: Yes (Death, Hospitalization)
  Sender: FDA-Public Use
  Company Number: PHHO2018US004507

PATIENT
  Age: 44 Year
  Sex: Male
  Weight: 60.8 kg

DRUGS (2)
  1. GSK2118436 [Suspect]
     Active Substance: DABRAFENIB
     Indication: MALIGNANT MELANOMA
     Dosage: 150 MG, BID
     Route: 048
     Dates: start: 20171222, end: 20180207
  2. GSK1120212 [Suspect]
     Active Substance: TRAMETINIB
     Indication: MALIGNANT MELANOMA
     Dosage: 2 MG, QD
     Route: 048
     Dates: start: 20171222, end: 20180206

REACTIONS (2)
  - Cholecystitis infective [Recovered/Resolved]
  - Metastases to central nervous system [Fatal]

NARRATIVE: CASE EVENT DATE: 20180207
